FAERS Safety Report 20966843 (Version 1)
Quarter: 2022Q2

REPORT INFORMATION
  Report Type: Report from Study
  Country: ES (occurrence: ES)
  Receive Date: 20220616
  Receipt Date: 20220616
  Transmission Date: 20220721
  Serious: Yes (Hospitalization)
  Sender: FDA-Public Use
  Company Number: None

PATIENT
  Age: 51 Year
  Sex: Female

DRUGS (4)
  1. CARBOPLATIN [Interacting]
     Active Substance: CARBOPLATIN
     Indication: Breast cancer
     Dosage: EFG, 1 VIAL OF 15 ML, CYCLE EVERY 21 DAYS
     Dates: start: 20210930
  2. DOCETAXEL [Interacting]
     Active Substance: DOCETAXEL
     Indication: Breast cancer
     Dosage: STRENGTH: 20 MG/1, EFG, 1 VIAL OF 1 ML, CYCLE EVERY 21 DAYS
     Dates: start: 20210930
  3. PERJETA [Interacting]
     Active Substance: PERTUZUMAB
     Indication: Breast cancer
     Dosage: CYCLE EVERY 21 DAYS
     Dates: start: 20210930
  4. HERCEPTIN [Interacting]
     Active Substance: TRASTUZUMAB
     Indication: Breast cancer
     Dosage: IN VIAL, PACK OF 1 VIAL CONTAINING 600?MG/5 ML OF TRASTUZUMAB, 1 CYCLE EVERY 21 DAYS
     Dates: start: 20210930

REACTIONS (4)
  - Febrile neutropenia [Recovered/Resolved]
  - Neutropenia [Recovered/Resolved]
  - Drug interaction [Unknown]
  - Off label use [Unknown]

NARRATIVE: CASE EVENT DATE: 20211027
